FAERS Safety Report 9991753 (Version 1)
Quarter: 2014Q1

REPORT INFORMATION
  Report Type: Spontaneous
  Country: US (occurrence: US)
  Receive Date: 20140310
  Receipt Date: 20140310
  Transmission Date: 20141002
  Serious: No
  Sender: FDA-Public Use
  Company Number: US-BAYER-2014-035143

PATIENT
  Sex: Female

DRUGS (1)
  1. GIANVI [Suspect]

REACTIONS (3)
  - Amenorrhoea [None]
  - Inappropriate schedule of drug administration [None]
  - Inappropriate schedule of drug administration [None]
